FAERS Safety Report 18176410 (Version 1)
Quarter: 2020Q3

REPORT INFORMATION
  Report Type: Spontaneous
  Country: AU (occurrence: AU)
  Receive Date: 20200820
  Receipt Date: 20200820
  Transmission Date: 20201103
  Serious: Yes (Hospitalization, Other)
  Sender: FDA-Public Use
  Company Number: AU-SHIRE-AU202020115

PATIENT

DRUGS (3)
  1. SALOFALK [MESALAZINE] [Concomitant]
     Active Substance: MESALAMINE
     Indication: PRODUCT USED FOR UNKNOWN INDICATION
  2. MEZAVANT [Suspect]
     Active Substance: MESALAMINE
     Indication: COLITIS ULCERATIVE
     Dosage: 2.4 GRAM, 1X/DAY:QD
     Route: 065
     Dates: end: 20200614
  3. MEZAVANT [Suspect]
     Active Substance: MESALAMINE
     Dosage: 1.2 GRAM
     Dates: start: 20200523, end: 20200610

REACTIONS (4)
  - Pancreatitis acute [Recovered/Resolved]
  - Rash papular [Unknown]
  - Rash [Not Recovered/Not Resolved]
  - Abdominal pain [Recovered/Resolved]
